FAERS Safety Report 17571108 (Version 1)
Quarter: 2020Q1

REPORT INFORMATION
  Report Type: Report from Study
  Country: PE (occurrence: PE)
  Receive Date: 20200323
  Receipt Date: 20200323
  Transmission Date: 20200409
  Serious: Yes (Other)
  Sender: FDA-Public Use
  Company Number: PE-ACCORD-176626

PATIENT

DRUGS (3)
  1. TACROLIMUS. [Suspect]
     Active Substance: TACROLIMUS
     Indication: IMMUNOSUPPRESSION
     Dosage: STARTED AT 0.25 MG/KG/DAY (DIVIDED IN 2?DOSES)
  2. PREDNISONE. [Suspect]
     Active Substance: PREDNISONE
     Indication: IMMUNOSUPPRESSION
     Dosage: TARTING AT 2 MG/KG/DAY DURING THE FIRST WEEK, 0.2-0.15 MG/KG/DAY BY THE THIRD MONTH
  3. MYCOPHENOLIC ACID. [Suspect]
     Active Substance: MYCOPHENOLIC ACID
     Indication: IMMUNOSUPPRESSION
     Dosage: STARTED AT 600-800 MG/M2 BODY SURFACE AREA/DAY AND MAINTAINED SUCCESSIVELY

REACTIONS (1)
  - Oligoastrocytoma [Unknown]
